FAERS Safety Report 10305466 (Version 1)
Quarter: 2014Q3

REPORT INFORMATION
  Report Type: Spontaneous
  Country: DE (occurrence: DE)
  Receive Date: 20140715
  Receipt Date: 20140715
  Transmission Date: 20150326
  Serious: Yes (Other)
  Sender: FDA-Public Use
  Company Number: DE-MYLANLABS-2014S1016040

PATIENT
  Age: 75 Year
  Sex: Female

DRUGS (1)
  1. DOPADURA C [Suspect]
     Active Substance: CARBIDOPA\LEVODOPA
     Indication: PARKINSON^S DISEASE
     Dosage: 1 TABLET CONTAINS 100 MG LEVODOPA AND 27 MG CARBIDOPA MONOHYDRATE (EQUIVALENT TO 25 MG CARBIDOPA)
     Route: 048

REACTIONS (1)
  - Gastric mucosal lesion [Unknown]
